FAERS Safety Report 8010991-8 (Version None)
Quarter: 2011Q4

REPORT INFORMATION
  Report Type: 
  Country: None (occurrence: None)
  Receive Date: 20111228
  Receipt Date: 20111223
  Transmission Date: 20120403
  Serious: Yes (Other)
  Sender: FDA-Public Use
  Company Number: CN-PFIZER INC-2011313066

PATIENT

DRUGS (1)
  1. SOLU-MEDROL [Suspect]
     Indication: RESPIRATORY DISORDER
     Dosage: 40 MG, UNK

REACTIONS (2)
  - EYE PAIN [None]
  - OCULAR HYPERTENSION [None]
